FAERS Safety Report 5936009-6 (Version None)
Quarter: 2008Q4

REPORT INFORMATION
  Report Type: 
  Country: None (occurrence: None)
  Receive Date: 20081030
  Receipt Date: 20080620
  Transmission Date: 20090506
  Serious: No
  Sender: FDA-Public Use
  Company Number: US-BAYER-200812801BCC

PATIENT
  Age: 94 Year
  Sex: Female
  Weight: 49 kg

DRUGS (9)
  1. ALEVE [Suspect]
     Indication: ARTHRALGIA
     Dosage: TOTAL DAILY DOSE: 220 MG  UNIT DOSE: 220 MG
     Route: 048
     Dates: start: 20080613, end: 20080620
  2. VICODIN [Concomitant]
  3. PROCARDIA [Concomitant]
  4. PARAFON FORTE [Concomitant]
  5. LIPITOR [Concomitant]
  6. ACULAR [Concomitant]
  7. CENTRUM [Concomitant]
  8. EVISTA [Concomitant]
  9. PREVACID [Concomitant]

REACTIONS (1)
  - OSTEOPOROSIS [None]
